FAERS Safety Report 9541452 (Version 1)
Quarter: 2013Q3

REPORT INFORMATION
  Report Type: Spontaneous
  Country: US (occurrence: None)
  Receive Date: 20130919
  Receipt Date: 20130919
  Transmission Date: 20140515
  Serious: Yes (Other)
  Sender: FDA-Public Use
  Company Number: None

PATIENT
  Sex: Female

DRUGS (1)
  1. FENTANYL PATCH [Suspect]
     Indication: PAIN
     Dosage: 1 PATCH Q72H TRANSDERMAL
     Route: 062
     Dates: start: 201107

REACTIONS (1)
  - Rash generalised [None]
